FAERS Safety Report 9101169 (Version 1)
Quarter: 2013Q1

REPORT INFORMATION
  Report Type: Spontaneous
  Country: GB (occurrence: GB)
  Receive Date: 20130218
  Receipt Date: 20130218
  Transmission Date: 20140127
  Serious: Yes (Hospitalization)
  Sender: FDA-Public Use
  Company Number: GB-BAXTER-2013BAX005514

PATIENT
  Age: 49 Year
  Sex: Female
  Weight: 80 kg

DRUGS (12)
  1. CYCLOPHOSPHAMIDE INJECTION 1G [Suspect]
     Indication: BREAST CANCER
     Route: 065
     Dates: start: 20121004, end: 20121115
  2. DOCETAXEL [Suspect]
     Indication: BREAST CANCER
     Route: 065
     Dates: start: 20121206
  3. DOCETAXEL [Suspect]
     Route: 065
     Dates: start: 20121227, end: 20130117
  4. EPIRUBICIN [Suspect]
     Indication: BREAST CANCER
     Route: 065
     Dates: start: 20121004, end: 20121115
  5. FLUOROURACIL [Suspect]
     Indication: BREAST CANCER
     Route: 065
     Dates: start: 20121004, end: 20121115
  6. TRASTUZUMAB [Suspect]
     Indication: BREAST CANCER
     Route: 058
     Dates: start: 20121205
  7. APREPITANT [Concomitant]
     Indication: PRODUCT USED FOR UNKNOWN INDICATION
     Route: 065
     Dates: start: 20121115
  8. APREPITANT [Concomitant]
     Route: 065
     Dates: start: 20121116
  9. DEXAMETHASONE [Concomitant]
     Indication: PRODUCT USED FOR UNKNOWN INDICATION
     Dates: start: 20121004, end: 20121230
  10. DEXAMETHASONE [Concomitant]
     Dates: start: 20121205
  11. FILGRASTIM [Concomitant]
     Indication: PRODUCT USED FOR UNKNOWN INDICATION
     Dates: start: 20121004, end: 20130122
  12. LOSEC [Concomitant]
     Indication: PRODUCT USED FOR UNKNOWN INDICATION
     Dates: start: 20121211

REACTIONS (3)
  - Lower respiratory tract infection [Recovered/Resolved]
  - Pyrexia [Recovered/Resolved]
  - Pyrexia [Recovered/Resolved]
